FAERS Safety Report 16586756 (Version 1)
Quarter: 2019Q3

REPORT INFORMATION
  Report Type: Spontaneous
  Country: US (occurrence: US)
  Receive Date: 20190717
  Receipt Date: 20190717
  Transmission Date: 20191004
  Serious: Yes (Hospitalization)
  Sender: FDA-Public Use
  Company Number: US-MISSION PHARMACAL COMPANY-2070947

PATIENT
  Age: 39 Year
  Sex: Male

DRUGS (3)
  1. THIOLA [Suspect]
     Active Substance: TIOPRONIN
     Indication: CYSTINURIA
     Route: 065
     Dates: start: 20180208
  2. MEROPENEM. [Concomitant]
     Active Substance: MEROPENEM
     Route: 042
  3. FLOMAX [Concomitant]
     Active Substance: TAMSULOSIN HYDROCHLORIDE

REACTIONS (3)
  - Pollakiuria [Unknown]
  - Testicular swelling [Unknown]
  - Calculus bladder [Unknown]
